FAERS Safety Report 5086791-8 (Version None)
Quarter: 2006Q3

REPORT INFORMATION
  Report Type: 
  Country: None (occurrence: None)
  Receive Date: 20060823
  Receipt Date: 20060815
  Transmission Date: 20061208
  Serious: Yes (Hospitalization, Other)
  Sender: FDA-Public Use
  Company Number: 2006UW16436

PATIENT
  Age: 59 Year
  Sex: Male

DRUGS (8)
  1. ATENOLOL [Suspect]
     Indication: ANGINA PECTORIS
     Route: 048
  2. IMDUR [Suspect]
     Indication: HYPERTENSION
     Route: 048
     Dates: start: 20060620
  3. ASPIRIN [Concomitant]
  4. HUMALOG [Concomitant]
     Indication: DIABETES MELLITUS INSULIN-DEPENDENT
  5. LEVEMIR [Concomitant]
     Indication: DIABETES MELLITUS INSULIN-DEPENDENT
  6. SYNTHROID [Concomitant]
     Indication: THYROID DISORDER
  7. CALCIUM GLUCONATE [Concomitant]
     Indication: THYROID DISORDER
  8. ROCALTROL [Concomitant]
     Indication: THYROID DISORDER

REACTIONS (2)
  - CATARACT [None]
  - VISUAL ACUITY REDUCED [None]
